FAERS Safety Report 6612168-7 (Version None)
Quarter: 2010Q1

REPORT INFORMATION
  Report Type: 
  Country: None (occurrence: None)
  Receive Date: 20100303
  Receipt Date: 20100224
  Transmission Date: 20100710
  Serious: Yes (Hospitalization)
  Sender: FDA-Public Use
  Company Number: US-GILEAD-2010-0027308

PATIENT
  Sex: Female
  Weight: 75.3 kg

DRUGS (7)
  1. LETAIRIS [Suspect]
     Indication: PULMONARY ARTERIAL HYPERTENSION
     Route: 048
     Dates: start: 20100203, end: 20100210
  2. WARFARIN SODIUM [Concomitant]
  3. FUROSEMIDE [Concomitant]
  4. ALTACE [Concomitant]
  5. DILTIAZEM HCL [Concomitant]
  6. CALCIUM [Concomitant]
  7. CENTRUM [Concomitant]

REACTIONS (5)
  - DYSPNOEA [None]
  - HALLUCINATION [None]
  - MYDRIASIS [None]
  - OEDEMA [None]
  - SKIN DISCOLOURATION [None]
